FAERS Safety Report 4829879-6 (Version None)
Quarter: 2005Q4

REPORT INFORMATION
  Report Type: 
  Country: None (occurrence: None)
  Receive Date: 20051115
  Receipt Date: 20051115
  Transmission Date: 20060501
  Serious: Yes (Other)
  Sender: FDA-Public Use
  Company Number: None

PATIENT
  Sex: Female
  Weight: 61.2356 kg

DRUGS (8)
  1. MONISTAT 1 COMBINATION PACK [Suspect]
     Indication: VULVOVAGINAL MYCOTIC INFECTION
     Dosage: TIOCONAZOLE 6.5% ONE TIME DOSE VAG
     Route: 067
     Dates: start: 20051028, end: 20051028
  2. SYNTHROID [Concomitant]
  3. PINDOLOL [Concomitant]
  4. VIACTIV [Concomitant]
  5. CLARINEX [Concomitant]
  6. BENADRYL [Concomitant]
  7. HYDROCORTISONE CREAM 1% [Concomitant]
  8. BENADRYL ITCH RELIEF SPRAY [Concomitant]

REACTIONS (8)
  - ADVERSE DRUG REACTION [None]
  - APPLICATION SITE REACTION [None]
  - DRUG INEFFECTIVE [None]
  - FEELING HOT [None]
  - GENITAL BURNING SENSATION [None]
  - PRURITUS [None]
  - URTICARIA [None]
  - VULVOVAGINAL DISCOMFORT [None]
